FAERS Safety Report 5850724-4 (Version None)
Quarter: 2008Q3

REPORT INFORMATION
  Report Type: 
  Country: None (occurrence: None)
  Receive Date: 20080819
  Receipt Date: 20080819
  Transmission Date: 20090109
  Serious: Yes (Life-Threatening, Hospitalization)
  Sender: FDA-Public Use
  Company Number: None

PATIENT
  Age: 86 Year
  Sex: Female
  Weight: 56.6996 kg

DRUGS (1)
  1. MELOXICAM [Suspect]
     Indication: ARTHRITIS
     Dosage: 1  7.5 MG TAB 2X / DAY PO
     Route: 048
     Dates: start: 20080111, end: 20080810

REACTIONS (2)
  - RECTAL HAEMORRHAGE [None]
  - VASCULAR RUPTURE [None]
